FAERS Safety Report 7764256-X (Version None)
Quarter: 2011Q3

REPORT INFORMATION
  Report Type: 
  Country: None (occurrence: None)
  Receive Date: 20110921
  Receipt Date: 20110908
  Transmission Date: 20111222
  Serious: Yes (Death, Other)
  Sender: FDA-Public Use
  Company Number: JP-AMGEN-JPNSP2011023971

PATIENT
  Age: 67 Year
  Sex: Male
  Weight: 50 kg

DRUGS (16)
  1. ENBREL [Suspect]
     Dosage: 50 MG, WEEKLY
     Route: 058
     Dates: start: 20110121, end: 20110401
  2. PYDOXAL [Concomitant]
     Dosage: 10 MG, 1X/DAY
     Route: 048
  3. MUCOSTA [Concomitant]
     Indication: PROPHYLAXIS AGAINST GASTROINTESTINAL ULCER
     Dosage: 300 MG, 1X/DAY
     Route: 048
  4. ENBREL [Suspect]
     Indication: RHEUMATOID ARTHRITIS
     Dosage: 25 MG, WEEKLY
     Route: 058
     Dates: start: 20101022, end: 20110120
  5. LEVOFLOXACIN [Suspect]
     Indication: BRONCHITIS
  6. ISONIAZID [Concomitant]
     Indication: ANTIBIOTIC PROPHYLAXIS
     Dosage: 300 MG, 1X/DAY
     Route: 048
     Dates: start: 20101011, end: 20110408
  7. CALBLOCK [Concomitant]
     Indication: HYPERTENSION
     Dosage: 16 MG, 1X/DAY
     Route: 048
  8. LEVOFLOXACIN [Suspect]
     Indication: INTERSTITIAL LUNG DISEASE
     Dosage: 500 MG, 1X/DAY
     Route: 048
     Dates: start: 20110408, end: 20110408
  9. BACTAR [Concomitant]
     Indication: PNEUMOCYSTIS JIROVECI PNEUMONIA
     Dosage: UNK
     Route: 048
     Dates: start: 20101011, end: 20110408
  10. AMARYL [Concomitant]
     Indication: DIABETES MELLITUS
     Dosage: 1 MG, 1X/DAY
     Route: 048
  11. VOGLIBOSE [Concomitant]
     Indication: DIABETES MELLITUS
     Dosage: 0.9 MG, 1X/DAY
     Route: 048
  12. ACTONEL [Concomitant]
     Indication: OSTEOPOROSIS
     Dosage: 17.5 MG, WEEKLY
     Route: 048
     Dates: start: 20101126, end: 20110408
  13. PREDNISOLONE [Concomitant]
     Indication: RHEUMATOID ARTHRITIS
     Dosage: 4 MG, 1X/DAY
  14. FOLIC ACID [Concomitant]
     Dosage: 5 MG, 1X/DAY
     Route: 048
  15. METHOTREXATE SODIUM [Suspect]
     Indication: RHEUMATOID ARTHRITIS
     Dosage: 10 MG, WEEKLY
  16. LAFUTIDINE [Concomitant]
     Indication: GASTRIC ULCER
     Dosage: 10 MG, 1X/DAY
     Route: 048

REACTIONS (3)
  - INTERSTITIAL LUNG DISEASE [None]
  - DRUG EFFECT DECREASED [None]
  - INFECTION [None]
